FAERS Safety Report 8200237-X (Version None)
Quarter: 2012Q1

REPORT INFORMATION
  Report Type: 
  Country: None (occurrence: None)
  Receive Date: 20120312
  Receipt Date: 20120305
  Transmission Date: 20120608
  Serious: Yes (Other)
  Sender: FDA-Public Use
  Company Number: US-PFIZER INC-2012039725

PATIENT
  Sex: Female

DRUGS (8)
  1. RELAFEN [Suspect]
     Dosage: UNK
  2. E.E.S. [Suspect]
     Dosage: UNK
  3. ERYTHROMYCIN [Suspect]
     Dosage: UNK
  4. TETRACYCLINE HYDROCHLORIDE [Suspect]
     Dosage: UNK
  5. POTASSIUM PENICILLIN G [Suspect]
     Dosage: UNK
  6. FLUORIDE [Suspect]
     Dosage: UNK
  7. NOVOCAIN [Suspect]
     Dosage: UNK
  8. LEVAQUIN [Suspect]
     Dosage: UNK

REACTIONS (5)
  - RASH [None]
  - DRUG HYPERSENSITIVITY [None]
  - CHEST DISCOMFORT [None]
  - RESPIRATORY DISTRESS [None]
  - OEDEMA [None]
